FAERS Safety Report 13471585 (Version 1)
Quarter: 2017Q2

REPORT INFORMATION
  Report Type: Spontaneous
  Country: US (occurrence: US)
  Receive Date: 20170424
  Receipt Date: 20170424
  Transmission Date: 20170830
  Serious: No
  Sender: FDA-Public Use
  Company Number: US-BAYER-2017-077219

PATIENT
  Sex: Female

DRUGS (3)
  1. MULTI-VIT [Concomitant]
     Active Substance: VITAMINS
  2. ALEVE [Suspect]
     Active Substance: NAPROXEN SODIUM
     Indication: PAIN
     Dosage: 1 DF, PRN
     Route: 048
     Dates: start: 2001
  3. ALKA SELTZER HEARTBURN RELIEFCHEWS [Concomitant]
     Dosage: UNK

REACTIONS (1)
  - Expired product administered [Unknown]
